FAERS Safety Report 16596749 (Version 1)
Quarter: 2019Q3

REPORT INFORMATION
  Report Type: Spontaneous
  Country: US (occurrence: US)
  Receive Date: 20190718
  Receipt Date: 20190718
  Transmission Date: 20191004
  Serious: Yes (Hospitalization)
  Sender: FDA-Public Use
  Company Number: None

PATIENT
  Age: 63 Year
  Sex: Male

DRUGS (4)
  1. METHOTREXATE. [Concomitant]
     Active Substance: METHOTREXATE
  2. COSENTYX [Suspect]
     Active Substance: SECUKINUMAB
     Indication: INFLAMMATION
     Dosage: ?          OTHER FREQUENCY:EVERY 4 WEEKS;?
     Route: 058
  3. ASPIRIN. [Concomitant]
     Active Substance: ASPIRIN
  4. FOLIC ACID. [Concomitant]
     Active Substance: FOLIC ACID

REACTIONS (2)
  - Therapy cessation [None]
  - Surgery [None]

NARRATIVE: CASE EVENT DATE: 20190717
